FAERS Safety Report 9824724 (Version 4)
Quarter: 2016Q1

REPORT INFORMATION
  Report Type: Report from Study
  Country: US (occurrence: US)
  Receive Date: 20140117
  Receipt Date: 20160219
  Transmission Date: 20160526
  Serious: No
  Sender: FDA-Public Use
  Company Number: US-BEH-2014040107

PATIENT
  Age: 77 Year
  Sex: Male

DRUGS (5)
  1. PRIVIGEN [Suspect]
     Active Substance: HUMAN IMMUNOGLOBULIN G
     Dosage: MAXIMUM INFUSION RATE 484 ML/H
     Dates: start: 20130717, end: 20130717
  2. IMURAN [Concomitant]
     Active Substance: AZATHIOPRINE
     Dosage: START DATE: ??-JAN-2012
     Route: 048
  3. VITAMIN B12 [Concomitant]
     Active Substance: CYANOCOBALAMIN
     Indication: VITAMIN B12 DEFICIENCY
     Route: 048
     Dates: start: 20120408
  4. PRIVIGEN [Suspect]
     Active Substance: HUMAN IMMUNOGLOBULIN G
     Dosage: MAXIMUN INFUSION RATE 483ML/H
     Dates: start: 20130716, end: 20130716
  5. VITAMIN C [Concomitant]
     Active Substance: ASCORBIC ACID
     Dosage: START DATE: JAN-2009
     Route: 048

REACTIONS (1)
  - Leukopenia [Recovered/Resolved]

NARRATIVE: CASE EVENT DATE: 20130717
